FAERS Safety Report 17436669 (Version 1)
Quarter: 2020Q1

REPORT INFORMATION
  Report Type: Spontaneous
  Country: US (occurrence: US)
  Receive Date: 20200219
  Receipt Date: 20200219
  Transmission Date: 20200409
  Serious: No
  Sender: FDA-Public Use
  Company Number: US-SA-2020SA044571

PATIENT
  Sex: Male

DRUGS (15)
  1. JAKAFI [Suspect]
     Active Substance: RUXOLITINIB
     Indication: POLYCYTHAEMIA VERA
     Dosage: 20 MG, BID
     Route: 048
  2. ALLOPURINOL. [Concomitant]
     Active Substance: ALLOPURINOL
  3. GLYXAMBI [Concomitant]
     Active Substance: EMPAGLIFLOZIN\LINAGLIPTIN
  4. LISINOPRIL. [Concomitant]
     Active Substance: LISINOPRIL
  5. ADVIL [IBUPROFEN] [Concomitant]
     Active Substance: IBUPROFEN
  6. LISINOPRIL/HCTZ [Concomitant]
     Active Substance: HYDROCHLOROTHIAZIDE\LISINOPRIL
  7. JAKAFI [Suspect]
     Active Substance: RUXOLITINIB
     Dosage: 20MG AND 10MG QAM; 20MG QPM
     Route: 048
     Dates: start: 20191127
  8. JAKAFI [Suspect]
     Active Substance: RUXOLITINIB
     Dosage: 25 MG, BID
     Route: 048
     Dates: start: 20191127
  9. JAKAFI [Suspect]
     Active Substance: RUXOLITINIB
     Dosage: 20MG AND 10MG QAM; 20MG QPM
     Route: 048
     Dates: start: 20191127
  10. METFORMIN [Concomitant]
     Active Substance: METFORMIN HYDROCHLORIDE
  11. NAPROXEN. [Concomitant]
     Active Substance: NAPROXEN
  12. ZOLPIDEM [Concomitant]
     Active Substance: ZOLPIDEM TARTRATE
  13. VITAMIN B12 [Concomitant]
     Active Substance: CYANOCOBALAMIN
  14. GLIMEPIRIDE. [Suspect]
     Active Substance: GLIMEPIRIDE
     Indication: BLOOD GLUCOSE ABNORMAL
     Dosage: UNK UNK, PRN
     Route: 065
  15. ATORVASTATIN [Concomitant]
     Active Substance: ATORVASTATIN

REACTIONS (5)
  - Haemoglobin decreased [Unknown]
  - Platelet count increased [Unknown]
  - Haematocrit decreased [Unknown]
  - Weight increased [Unknown]
  - Laboratory test abnormal [Unknown]
